FAERS Safety Report 20684557 (Version 1)
Quarter: 2022Q2

REPORT INFORMATION
  Report Type: Spontaneous
  Country: AR (occurrence: AR)
  Receive Date: 20220407
  Receipt Date: 20220407
  Transmission Date: 20220721
  Serious: Yes (Life-Threatening, Other)
  Sender: FDA-Public Use
  Company Number: AR-PFIZER INC-202200489221

PATIENT
  Age: 50 Year
  Sex: Female

DRUGS (1)
  1. VYNDAQEL [Suspect]
     Active Substance: TAFAMIDIS MEGLUMINE

REACTIONS (4)
  - Haemorrhage [Unknown]
  - Postoperative wound complication [Unknown]
  - Asthenia [Unknown]
  - Mobility decreased [Unknown]
